FAERS Safety Report 8911575 (Version 1)
Quarter: 2012Q4

REPORT INFORMATION
  Report Type: 
  Country: US (occurrence: US)
  Receive Date: 20121116
  Receipt Date: 20121116
  Transmission Date: 20130627
  Serious: Yes (Hospitalization)
  Sender: FDA-Public Use
  Company Number: US-PFIZER INC-2012286708

PATIENT
  Age: 60 Year
  Sex: Female
  Weight: 90.7 kg

DRUGS (2)
  1. LIPITOR [Suspect]
     Indication: HEART DISORDER
     Dosage: UNK
  2. LIPITOR [Suspect]
     Dosage: 40 mg, daily

REACTIONS (4)
  - Tibia fracture [Unknown]
  - Fall [Unknown]
  - Muscular weakness [Unknown]
  - Impaired healing [Unknown]
